FAERS Safety Report 5220733-7 (Version None)
Quarter: 2007Q1

REPORT INFORMATION
  Report Type: 
  Country: None (occurrence: None)
  Receive Date: 20070126
  Receipt Date: 20060705
  Transmission Date: 20070707
  Serious: Yes (Hospitalization)
  Sender: FDA-Public Use
  Company Number: GB-AVENTIS-200617023GDDC

PATIENT
  Sex: Male

DRUGS (2)
  1. CLAFORAN [Suspect]
  2. CEFTAZIDIME [Concomitant]

REACTIONS (1)
  - HEPATIC FAILURE [None]
